FAERS Safety Report 8092635-2 (Version None)
Quarter: 2012Q1

REPORT INFORMATION
  Report Type: 
  Country: None (occurrence: None)
  Receive Date: 20120131
  Receipt Date: 20120120
  Transmission Date: 20120608
  Serious: Yes (Hospitalization, Other)
  Sender: FDA-Public Use
  Company Number: US-BAYER-2011-050397

PATIENT
  Age: 50 Year
  Sex: Female
  Weight: 70 kg

DRUGS (13)
  1. ZYRTEC [Concomitant]
     Dosage: 10 MG, UNK
     Route: 048
  2. TOPROL-XL [Concomitant]
     Dosage: 25 MG, UNK
     Route: 048
  3. YASMIN [Suspect]
     Indication: MIGRAINE PROPHYLAXIS
     Dosage: UNK
     Dates: start: 20040101, end: 20090101
  4. PROZAC [Concomitant]
     Dosage: 10 MG, UNK
     Route: 048
  5. IBUPROFEN [Concomitant]
     Indication: PAIN
     Dosage: UNK UNK, PRN
  6. ALBUTEROL [Concomitant]
     Indication: ASTHMA
     Dosage: UNK UNK, PRN
  7. LEXAPRO [Concomitant]
     Indication: DEPRESSION
  8. DROSPIRENONE AND ETHINYL ESTRADIOL [Suspect]
     Dosage: UNK
     Dates: start: 20040101, end: 20090101
  9. HYDROCODONE BITARTRATE AND ACETAMINOPHEN [Concomitant]
     Dosage: 5-500MG TABLET
     Dates: start: 20090501
  10. IMITREX [Concomitant]
     Indication: MIGRAINE
     Dosage: 50 MG, UNK
     Route: 048
  11. SINGULAIR [Concomitant]
     Dosage: 4 MG, UNK
     Route: 048
  12. NEXIUM [Concomitant]
     Indication: GASTROOESOPHAGEAL REFLUX DISEASE
     Dosage: 20 MG, UNK
     Route: 048
  13. METFORMIN HCL [Concomitant]
     Indication: WEIGHT CONTROL

REACTIONS (9)
  - DEEP VEIN THROMBOSIS [None]
  - PAIN [None]
  - CHOLECYSTITIS CHRONIC [None]
  - EMBOLISM [None]
  - LOSS OF CONSCIOUSNESS [None]
  - PULMONARY EMBOLISM [None]
  - VAGINAL HAEMORRHAGE [None]
  - BILE DUCT STONE [None]
  - GALLBLADDER DISORDER [None]
